FAERS Safety Report 9241127 (Version 1)
Quarter: 2013Q2

REPORT INFORMATION
  Report Type: Spontaneous
  Country: US (occurrence: US)
  Receive Date: 20130419
  Receipt Date: 20130419
  Transmission Date: 20140414
  Serious: Yes (Life-Threatening)
  Sender: FDA-Public Use
  Company Number: US-BAYER-2013-048646

PATIENT
  Age: 33 Year
  Sex: Female

DRUGS (1)
  1. YAZ [Suspect]

REACTIONS (1)
  - Apparent death [None]
